FAERS Safety Report 23992042 (Version 2)
Quarter: 2024Q2

REPORT INFORMATION
  Report Type: Spontaneous
  Country: US (occurrence: US)
  Receive Date: 20240620
  Receipt Date: 20240620
  Transmission Date: 20240715
  Serious: Yes (Disabling, Other)
  Sender: FDA-Public Use
  Company Number: US-ROCHE-3578638

PATIENT
  Age: 67 Year
  Sex: Female
  Weight: 52.07 kg

DRUGS (21)
  1. AVASTIN [Suspect]
     Active Substance: BEVACIZUMAB
     Indication: Rectal cancer metastatic
     Route: 065
     Dates: start: 20231019
  2. LONSURF [Suspect]
     Active Substance: TIPIRACIL HYDROCHLORIDE\TRIFLURIDINE
     Indication: Rectal cancer metastatic
     Route: 048
     Dates: start: 20231019
  3. LONSURF [Suspect]
     Active Substance: TIPIRACIL HYDROCHLORIDE\TRIFLURIDINE
     Route: 048
  4. ACETAMINOPHEN [Concomitant]
     Active Substance: ACETAMINOPHEN
  5. ALBUTEROL SULFATE [Concomitant]
     Active Substance: ALBUTEROL SULFATE
  6. ALPRAZOLAM [Concomitant]
     Active Substance: ALPRAZOLAM
  7. AMLODIPINE [Concomitant]
     Active Substance: AMLODIPINE BESYLATE
  8. LOSARTAN POTASSIUM [Concomitant]
     Active Substance: LOSARTAN POTASSIUM
  9. ONDANSETRON [Concomitant]
     Active Substance: ONDANSETRON
  10. PERCOCET [Concomitant]
     Active Substance: ACETAMINOPHEN\OXYCODONE HYDROCHLORIDE
  11. PREGABALIN [Concomitant]
     Active Substance: PREGABALIN
  12. FOLIC ACID [Concomitant]
     Active Substance: FOLIC ACID
  13. CYANOCOBALAMIN [Concomitant]
     Active Substance: CYANOCOBALAMIN
  14. LOPERAMIDE [Concomitant]
     Active Substance: LOPERAMIDE
  15. MEDROL [Concomitant]
     Active Substance: METHYLPREDNISOLONE
  16. DIETARY SUPPLEMENT\HERBALS\MILK THISTLE [Concomitant]
     Active Substance: MILK THISTLE
  17. PREDNISONE [Concomitant]
     Active Substance: PREDNISONE
  18. MONTELUKAST [Concomitant]
     Active Substance: MONTELUKAST SODIUM
  19. PROCHLORPERAZINE MALEATE [Concomitant]
     Active Substance: PROCHLORPERAZINE MALEATE
  20. LIDOCAINE\PRILOCAINE [Concomitant]
     Active Substance: LIDOCAINE\PRILOCAINE
  21. IPRATROPIUM [Concomitant]
     Active Substance: IPRATROPIUM

REACTIONS (19)
  - Decreased appetite [Recovered/Resolved]
  - Fatigue [Unknown]
  - Hypomagnesaemia [Unknown]
  - Bronchitis [Unknown]
  - Cytopenia [Unknown]
  - Performance status decreased [Unknown]
  - Proteinuria [Unknown]
  - Flatulence [Unknown]
  - Bowel movement irregularity [Unknown]
  - Haemorrhoids [Unknown]
  - Asthenia [Unknown]
  - Pain [Unknown]
  - Dyspnoea exertional [Unknown]
  - Arthralgia [Unknown]
  - Hyperkalaemia [Unknown]
  - Bone pain [Unknown]
  - Headache [Unknown]
  - Nervousness [Unknown]
  - Anxiety [Unknown]

NARRATIVE: CASE EVENT DATE: 20231110
